FAERS Safety Report 18620835 (Version 4)
Quarter: 2021Q1

REPORT INFORMATION
  Report Type: Spontaneous
  Country: FR (occurrence: FR)
  Receive Date: 20201215
  Receipt Date: 20210324
  Transmission Date: 20210419
  Serious: Yes (Other)
  Sender: FDA-Public Use
  Company Number: FR-ALXN-A202018357

PATIENT
  Age: 26 Year
  Sex: Female
  Weight: 78 kg

DRUGS (5)
  1. STRENSIQ [Suspect]
     Active Substance: ASFOTASE ALFA
     Dosage: 80 MG, QW
     Route: 065
  2. STRENSIQ [Suspect]
     Active Substance: ASFOTASE ALFA
     Dosage: 80 MG, 6/7 DAYS
     Route: 065
     Dates: start: 201609, end: 201901
  3. STRENSIQ [Suspect]
     Active Substance: ASFOTASE ALFA
     Dosage: 80 MG, QIW
     Route: 065
     Dates: start: 2020
  4. STRENSIQ [Suspect]
     Active Substance: ASFOTASE ALFA
     Indication: HYPOPHOSPHATASIA
     Dosage: 1 MG/KG , QD
     Route: 065
     Dates: start: 201609
  5. STRENSIQ [Suspect]
     Active Substance: ASFOTASE ALFA
     Dosage: 80 MG, SIX TIMES/WEEK
     Route: 065
     Dates: start: 201609, end: 202001

REACTIONS (5)
  - Spinal ligament ossification [Recovering/Resolving]
  - Spinal cord compression [Recovering/Resolving]
  - Pyramidal tract syndrome [Recovering/Resolving]
  - Neck pain [Recovering/Resolving]
  - Musculoskeletal stiffness [Recovering/Resolving]

NARRATIVE: CASE EVENT DATE: 201909
